FAERS Safety Report 9538786 (Version 1)
Quarter: 2013Q3

REPORT INFORMATION
  Report Type: Spontaneous
  Country: US (occurrence: US)
  Receive Date: 20130920
  Receipt Date: 20130920
  Transmission Date: 20140515
  Serious: Yes (Hospitalization)
  Sender: FDA-Public Use
  Company Number: PHEH2013US019628

PATIENT
  Age: 64 Year
  Sex: Male

DRUGS (6)
  1. EVEROLIMUS [Suspect]
     Dosage: UNK UKN, UNK
     Dates: start: 20130531
  2. HUMIRA [Suspect]
     Indication: CROHN^S DISEASE
     Dosage: 40 MG, UNK
     Route: 058
     Dates: start: 20120519
  3. HUMIRA [Suspect]
     Dosage: 60 MG, UNK
     Route: 058
     Dates: start: 20130602
  4. HUMIRA [Suspect]
     Dosage: 40 MG, UNK
     Route: 058
     Dates: start: 20130617
  5. LIPITOR [Concomitant]
     Indication: BLOOD CHOLESTEROL INCREASED
     Dosage: UNK UKN, UNK
  6. FINASTERIDE [Concomitant]
     Indication: BENIGN PROSTATIC HYPERPLASIA
     Dosage: UNK UKN, UNK

REACTIONS (6)
  - Coronary artery occlusion [Recovered/Resolved]
  - Myocardial infarction [Recovered/Resolved]
  - Chest pain [Recovered/Resolved]
  - Electrocardiogram abnormal [Unknown]
  - Cardiac enzymes increased [Unknown]
  - White blood cell count decreased [Unknown]
